FAERS Safety Report 10190751 (Version 1)
Quarter: 2014Q2

REPORT INFORMATION
  Report Type: Spontaneous
  Country: US (occurrence: US)
  Receive Date: 20140523
  Receipt Date: 20140523
  Transmission Date: 20141212
  Serious: Yes (Death)
  Sender: FDA-Public Use
  Company Number: US-BIOGENIDEC-2014BI046378

PATIENT
  Age: 80 Year
  Sex: Male

DRUGS (1)
  1. TECFIDERA [Suspect]
     Indication: MULTIPLE SCLEROSIS
     Route: 048
     Dates: start: 20140206

REACTIONS (4)
  - Cardiopulmonary failure [Fatal]
  - Urinary tract infection [Unknown]
  - Pneumonia [Unknown]
  - Multiple sclerosis [Unknown]
